FAERS Safety Report 7810865-9 (Version None)
Quarter: 2011Q4

REPORT INFORMATION
  Report Type: 
  Country: None (occurrence: None)
  Receive Date: 20111012
  Receipt Date: 20111012
  Transmission Date: 20120403
  Serious: Yes (Hospitalization)
  Sender: FDA-Public Use
  Company Number: None

PATIENT
  Sex: Male
  Weight: 67.9 kg

DRUGS (1)
  1. CAMPATH [Suspect]
     Dosage: 60 MG

REACTIONS (8)
  - FATIGUE [None]
  - PLATELET COUNT DECREASED [None]
  - DYSPNOEA [None]
  - HYPOAESTHESIA [None]
  - FALL [None]
  - GAIT DISTURBANCE [None]
  - HAEMOGLOBIN DECREASED [None]
  - MUSCULAR WEAKNESS [None]
